FAERS Safety Report 12943369 (Version 1)
Quarter: 2016Q4

REPORT INFORMATION
  Report Type: Spontaneous
  Country: BR (occurrence: BR)
  Receive Date: 20161115
  Receipt Date: 20161115
  Transmission Date: 20170207
  Serious: Yes (Other)
  Sender: FDA-Public Use
  Company Number: BR-GLAXOSMITHKLINE-BR2016GSK147857

PATIENT
  Age: 45 Year
  Sex: Female
  Weight: 64 kg

DRUGS (4)
  1. PRELONE (PREDNISOLONE) [Concomitant]
     Indication: RESPIRATORY TRACT INFECTION
     Dosage: UNK
     Route: 048
  2. PRELONE (PREDNISOLONE) [Concomitant]
     Indication: SECRETION DISCHARGE
  3. RELVAR ELLIPTA [Suspect]
     Active Substance: FLUTICASONE FUROATE\VILANTEROL TRIFENATATE
     Indication: ASTHMA
     Dosage: UNK, USED ONLY FOR 20 DAYS
     Dates: start: 201510
  4. FLUIMUCIL (ACETYLCYSTEINE) [Concomitant]
     Indication: SECRETION DISCHARGE
     Dosage: 600 MG, BID
     Route: 048

REACTIONS (4)
  - Asthmatic crisis [Unknown]
  - Cough [Unknown]
  - Asthma [Unknown]
  - Dyspnoea [Unknown]

NARRATIVE: CASE EVENT DATE: 201510
